FAERS Safety Report 11867370 (Version 2)
Quarter: 2015Q4

REPORT INFORMATION
  Report Type: Spontaneous
  Country: JP (occurrence: JP)
  Receive Date: 20151224
  Receipt Date: 20151230
  Transmission Date: 20160305
  Serious: Yes (Other)
  Sender: FDA-Public Use
  Company Number: JP-PFIZER INC-2015300925

PATIENT
  Age: 9 Decade
  Sex: Female
  Weight: 50 kg

DRUGS (3)
  1. CELECOX [Suspect]
     Active Substance: CELECOXIB
     Indication: LUMBAR SPINAL STENOSIS
     Dosage: 200 MG, 1X/DAY
     Route: 048
     Dates: end: 20150730
  2. SOLULACT [Concomitant]
     Indication: HEAT ILLNESS
     Dosage: 1000 ML, DAILY
     Dates: start: 20150715, end: 20150716
  3. SOLDEM 3A [Concomitant]
     Active Substance: CARBOHYDRATES\POTASSIUM CHLORIDE\SODIUM CHLORIDE\SODIUM LACTATE
     Indication: HEAT ILLNESS
     Dosage: 500 ML, DAILY
     Dates: start: 20150715, end: 20150716

REACTIONS (2)
  - Off label use [Unknown]
  - Blood creatine phosphokinase increased [Recovered/Resolved]
